FAERS Safety Report 9106889 (Version 1)
Quarter: 2013Q1

REPORT INFORMATION
  Report Type: Spontaneous
  Country: US (occurrence: US)
  Receive Date: 20130221
  Receipt Date: 20130221
  Transmission Date: 20140127
  Serious: No
  Sender: FDA-Public Use
  Company Number: US-ASTRAZENECA-2013SE04064

PATIENT
  Age: 81 Year
  Sex: Female
  Weight: 61.2 kg

DRUGS (11)
  1. SYMBICORT PMDI [Suspect]
     Indication: EMPHYSEMA
     Dosage: 80/4.5 MCG, 1 PUFF, TWO TIMES A DAY
     Route: 055
     Dates: start: 20130115
  2. METOPROLOL SUCCINATE [Suspect]
     Indication: HYPERTENSION
     Route: 048
     Dates: start: 201102
  3. OMEPRAZOLE [Suspect]
     Indication: GASTRIC ULCER
     Route: 048
     Dates: start: 201102
  4. MORPHINE [Suspect]
     Route: 065
  5. FOSEMAX [Concomitant]
     Indication: OSTEOPOROSIS
     Route: 048
  6. AMLODIPINE [Concomitant]
     Indication: HYPERTENSION
     Route: 048
  7. ANALOPRIL [Concomitant]
     Indication: HYPERTENSION
     Route: 048
  8. FLONASE [Concomitant]
     Dosage: 2 SPRAYS PER EANOST, DAILY
     Route: 045
  9. LEVOTHYROXINE [Concomitant]
     Indication: HYPOTHYROIDISM
     Route: 048
  10. ZOLOFT [Concomitant]
     Indication: DEPRESSION
     Route: 048
  11. TRAZADONE [Concomitant]
     Indication: DEPRESSION
     Route: 048

REACTIONS (4)
  - Dyspnoea [Unknown]
  - Emphysema [Unknown]
  - Drug hypersensitivity [Unknown]
  - Drug prescribing error [Unknown]
